FAERS Safety Report 22034986 (Version 1)
Quarter: 2023Q1

REPORT INFORMATION
  Report Type: Spontaneous
  Country: US (occurrence: None)
  Receive Date: 20230223
  Receipt Date: 20230223
  Transmission Date: 20230417
  Serious: Yes (Disabling, Other)
  Sender: FDA-Public Use
  Company Number: None

PATIENT
  Age: 52 Year
  Sex: Male
  Weight: 94.5 kg

DRUGS (1)
  1. PAXLOVID [Suspect]
     Active Substance: NIRMATRELVIR\RITONAVIR
     Indication: COVID-19
     Dates: start: 20221003, end: 20221013

REACTIONS (4)
  - COVID-19 [None]
  - Cardiac disorder [None]
  - Nervous system disorder [None]
  - Product complaint [None]

NARRATIVE: CASE EVENT DATE: 20220930
